FAERS Safety Report 7443434-3 (Version None)
Quarter: 2011Q2

REPORT INFORMATION
  Report Type: 
  Country: None (occurrence: None)
  Receive Date: 20110428
  Receipt Date: 20110420
  Transmission Date: 20111010
  Serious: Yes (Hospitalization)
  Sender: FDA-Public Use
  Company Number: FR-EISAI INC-E3810-04640-SPO-FR

PATIENT
  Age: 34 Year
  Sex: Male
  Weight: 83 kg

DRUGS (4)
  1. AUGMENTIN [Suspect]
     Indication: ODYNOPHAGIA
     Dosage: UNKNOWN
     Dates: end: 20110210
  2. TIAPROFENIC ACID [Suspect]
     Indication: ODYNOPHAGIA
     Dosage: UNKNOWN
     Dates: end: 20110210
  3. IBUPROFEN [Suspect]
     Indication: ODYNOPHAGIA
     Dosage: UNKNOWN
     Dates: end: 20110210
  4. PARIET (RABEPRAZOLE) [Suspect]
     Indication: ODYNOPHAGIA
     Dosage: UNKNOWN
     Route: 048
     Dates: start: 20110207, end: 20110210

REACTIONS (3)
  - EOSINOPHILIA [None]
  - FACE OEDEMA [None]
  - RASH MACULO-PAPULAR [None]
